FAERS Safety Report 10249074 (Version 1)
Quarter: 2014Q2

REPORT INFORMATION
  Report Type: Spontaneous
  Country: US (occurrence: US)
  Receive Date: 20140620
  Receipt Date: 20140620
  Transmission Date: 20141212
  Serious: Yes (Other)
  Sender: FDA-Public Use
  Company Number: US-JNJFOC-20140610668

PATIENT
  Sex: Male

DRUGS (5)
  1. INVOKANA [Suspect]
     Indication: PRODUCT USED FOR UNKNOWN INDICATION
     Route: 048
     Dates: start: 201406
  2. INVOKANA [Suspect]
     Indication: PRODUCT USED FOR UNKNOWN INDICATION
     Route: 048
     Dates: start: 201405, end: 201406
  3. METFORMIN [Concomitant]
  4. LISINOPRIL [Concomitant]
  5. LANTUS [Concomitant]
     Route: 058

REACTIONS (1)
  - Renal failure [Unknown]
